FAERS Safety Report 6450929-8 (Version None)
Quarter: 2009Q4

REPORT INFORMATION
  Report Type: 
  Country: None (occurrence: None)
  Receive Date: 20091123
  Receipt Date: 20091117
  Transmission Date: 20100525
  Serious: Yes (Hospitalization)
  Sender: FDA-Public Use
  Company Number: A0799498A

PATIENT
  Age: 52 Year
  Sex: Male

DRUGS (10)
  1. AVANDIA [Suspect]
     Indication: DIABETES MELLITUS
     Dosage: 4MG PER DAY
     Route: 048
     Dates: start: 20050201
  2. PAXIL CR [Concomitant]
  3. LOTREL [Concomitant]
  4. CIALIS [Concomitant]
  5. QUINAPRIL [Concomitant]
  6. CLONIDINE [Concomitant]
  7. AMARYL [Concomitant]
  8. TOPROL-XL [Concomitant]
  9. SIMVASTATIN [Concomitant]
  10. AMLODIPINE [Concomitant]

REACTIONS (2)
  - CEREBROVASCULAR ACCIDENT [None]
  - MYOCARDIAL INFARCTION [None]
